FAERS Safety Report 7405633-6 (Version None)
Quarter: 2011Q2

REPORT INFORMATION
  Report Type: 
  Country: None (occurrence: None)
  Receive Date: 20110411
  Receipt Date: 20110214
  Transmission Date: 20111010
  Serious: Yes (Death, Hospitalization, Other)
  Sender: FDA-Public Use
  Company Number: US-BAYER-200917869NA

PATIENT
  Age: 66 Year
  Sex: Male
  Weight: 95.692 kg

DRUGS (21)
  1. TRASYLOL [Suspect]
     Indication: TRICUSPID VALVE REPAIR
  2. PROTAMINE SULFATE [Concomitant]
     Dosage: 250 MG
     Route: 042
     Dates: start: 20070102
  3. NITROGLYCERIN [Concomitant]
     Dosage: UNK
     Route: 042
     Dates: start: 20070102
  4. AMIODARONE HCL [Concomitant]
     Dosage: UNK
     Dates: end: 20070329
  5. VERSED [Concomitant]
     Dosage: 10 MG
     Route: 042
     Dates: start: 20070102
  6. TRASYLOL [Suspect]
     Indication: CORONARY ARTERY BYPASS
     Dosage: 200 ML PUMP PRIME FOLLOWED BY 50 ML/HR INFUSION
     Route: 042
     Dates: start: 20070102, end: 20070102
  7. INSULIN [Concomitant]
     Dosage: 5 UNITS/HR
     Route: 042
     Dates: start: 20070102
  8. EPINEPHRINE [Concomitant]
     Dosage: 1 MG
     Route: 042
     Dates: start: 20070102
  9. TRASYLOL [Suspect]
     Indication: MITRAL VALVE REPAIR
  10. DOBUTAMINE HCL [Concomitant]
     Dosage: UNK
     Route: 042
     Dates: start: 20070102, end: 20070105
  11. RED BLOOD CELLS [Concomitant]
     Dosage: 1 U, UNK
     Dates: start: 20070102
  12. SODIUM NITROPRUSSIDE [Concomitant]
     Dosage: 100 MG
     Route: 042
     Dates: start: 20070102
  13. AMIODARONE HCL [Concomitant]
     Dosage: UNK
     Route: 042
     Dates: start: 20070102
  14. MAGNESIUM [Concomitant]
     Dosage: 2 MG
     Route: 042
     Dates: start: 20070102
  15. VANCOMYCIN [Concomitant]
     Dosage: 2 GMS
     Route: 042
     Dates: start: 20070102
  16. FENTANYL [Concomitant]
     Dosage: 0.2 MG
     Route: 042
     Dates: start: 20070102
  17. PANCURONIUM BROMIDE [Concomitant]
     Dosage: 8 MG
     Route: 042
     Dates: start: 20070102
  18. VITAMINS [Concomitant]
     Dosage: UNK UNK, QD
     Route: 048
  19. DOPAMINE HCL [Concomitant]
     Dosage: DRIP
     Route: 041
     Dates: start: 20070329
  20. LEVOPHED [Concomitant]
     Dosage: DRIP
     Route: 041
     Dates: start: 20070329
  21. ZESTRIL [Concomitant]
     Dosage: 10 MG, UNK
     Dates: start: 20070106, end: 20070111

REACTIONS (12)
  - MULTI-ORGAN FAILURE [None]
  - RENAL IMPAIRMENT [None]
  - ANXIETY [None]
  - RENAL FAILURE [None]
  - STRESS [None]
  - RENAL INJURY [None]
  - EMOTIONAL DISTRESS [None]
  - ANHEDONIA [None]
  - FEAR [None]
  - INJURY [None]
  - UNEVALUABLE EVENT [None]
  - PAIN [None]
